FAERS Safety Report 8910860 (Version 1)
Quarter: 2012Q4

REPORT INFORMATION
  Report Type: 
  Country: SE (occurrence: SE)
  Receive Date: 20121115
  Receipt Date: 20121115
  Transmission Date: 20130627
  Serious: Yes (Hospitalization, Other)
  Sender: FDA-Public Use
  Company Number: SE-PFIZER INC-2012281390

PATIENT
  Age: 38 Year
  Sex: Female
  Weight: 55.8 kg

DRUGS (14)
  1. GENOTROPIN [Suspect]
     Dosage: 1.0 mg, 1x/day, 7 injections/week
     Route: 058
     Dates: start: 20060126
  2. PROGYNON [Concomitant]
     Indication: LUTEINISING HORMONE DEFICIENCY
     Dosage: UNK
     Dates: start: 19971001
  3. PROGYNON [Concomitant]
     Indication: FOLLICLE-STIMULATING HORMONE DEFICIENCY
  4. CORTONE [Concomitant]
     Indication: ACTH DECREASED
     Dosage: UNK
     Dates: start: 19960401
  5. LEVAXIN [Concomitant]
     Indication: TSH DECREASED
     Dosage: UNK
     Dates: start: 19900101
  6. LEVAXIN [Concomitant]
     Indication: PRIMARY HYPOTHYROIDISM
  7. FLUOXETINE [Concomitant]
     Dosage: UNK
     Dates: start: 20010116
  8. TRISEKVENS [Concomitant]
     Indication: LUTEINISING HORMONE DEFICIENCY
     Dosage: UNK
     Dates: start: 20010616
  9. TRISEKVENS [Concomitant]
     Indication: FOLLICLE-STIMULATING HORMONE DEFICIENCY
  10. BUSPAR [Concomitant]
     Indication: ANXIOLYTIC THERAPY
     Dosage: UNK
     Dates: start: 20050701
  11. VALPROATE [Concomitant]
     Indication: ANXIETY
     Dosage: UNK
     Dates: start: 20050701
  12. ATARAX [Concomitant]
     Indication: DEPRESSION
     Dosage: UNK
     Dates: start: 20051130
  13. MIRTAZAPINE [Concomitant]
     Indication: DEPRESSION
     Dosage: UNK
     Dates: start: 20051201
  14. ALPRAZOLAM [Concomitant]
     Indication: ANXIETY
     Dosage: UNK
     Dates: start: 20051204

REACTIONS (2)
  - Pyelonephritis [Unknown]
  - Pyrexia [Unknown]
